FAERS Safety Report 4741347-9 (Version None)
Quarter: 2005Q3

REPORT INFORMATION
  Report Type: 
  Country: None (occurrence: None)
  Receive Date: 20050803
  Receipt Date: 20050120
  Transmission Date: 20060218
  Serious: Yes (Disabling, Other)
  Sender: FDA-Public Use
  Company Number: 2005-01-1563

PATIENT
  Age: 58 Year
  Sex: Female
  Weight: 46.2669 kg

DRUGS (3)
  1. INTRON A [Suspect]
     Indication: POLYCYTHAEMIA VERA
     Dosage: SEE IMAGE
     Route: 058
     Dates: end: 20041223
  2. INTRON A [Suspect]
     Indication: POLYCYTHAEMIA VERA
     Dosage: SEE IMAGE
     Route: 058
     Dates: start: 20040901
  3. INTRON A [Suspect]
     Indication: POLYCYTHAEMIA VERA
     Dosage: SEE IMAGE
     Route: 058
     Dates: start: 20040901

REACTIONS (6)
  - ASTHENIA [None]
  - FATIGUE [None]
  - NAUSEA [None]
  - PYREXIA [None]
  - VIRAL INFECTION [None]
  - VOMITING [None]
